FAERS Safety Report 4421888-4 (Version None)
Quarter: 2004Q3

REPORT INFORMATION
  Report Type: 
  Country: None (occurrence: None)
  Receive Date: 20040804
  Receipt Date: 20040722
  Transmission Date: 20050211
  Serious: Yes (Other)
  Sender: FDA-Public Use
  Company Number: 2004049694

PATIENT

DRUGS (1)
  1. DILANTIN [Suspect]
     Indication: ILL-DEFINED DISORDER
     Dosage: 300 MG

REACTIONS (3)
  - HYPERPLASIA [None]
  - LYMPHOPROLIFERATIVE DISORDER [None]
  - PLASMACYTOSIS [None]
